FAERS Safety Report 5278758-1 (Version None)
Quarter: 2007Q1

REPORT INFORMATION
  Report Type: 
  Country: None (occurrence: None)
  Receive Date: 20061213
  Receipt Date: 20050428
  Transmission Date: 20070707
  Serious: No
  Sender: FDA-Public Use
  Company Number: 2005UW06667

PATIENT
  Sex: Male

DRUGS (3)
  1. SEROQUEL [Suspect]
     Indication: PSYCHOTIC DISORDER
     Dosage: 200 MG HS PO
     Route: 048
     Dates: start: 20050101
  2. SEROQUEL [Suspect]
     Indication: SCHIZOAFFECTIVE DISORDER
     Dosage: 200 MG HS PO
     Route: 048
     Dates: start: 20050101
  3. DIABETES MEDICATION [Concomitant]

REACTIONS (3)
  - DYSURIA [None]
  - EJACULATION DISORDER [None]
  - INCONTINENCE [None]
